FAERS Safety Report 7355261-6 (Version None)
Quarter: 2011Q1

REPORT INFORMATION
  Report Type: 
  Country: None (occurrence: None)
  Receive Date: 20110316
  Receipt Date: 20110315
  Transmission Date: 20110831
  Serious: Yes (Hospitalization)
  Sender: FDA-Public Use
  Company Number: US-PFIZER INC-2011047967

PATIENT
  Sex: Male

DRUGS (1)
  1. SUTENT [Suspect]
     Indication: NEOPLASM MALIGNANT
     Dosage: 50 MG DAILY X 28 DAYS Q 42 DAYS
     Dates: start: 20101206

REACTIONS (2)
  - CEREBROVASCULAR ACCIDENT [None]
  - DISORIENTATION [None]
